FAERS Safety Report 7535579-4 (Version None)
Quarter: 2011Q2

REPORT INFORMATION
  Report Type: 
  Country: None (occurrence: None)
  Receive Date: 20110609
  Receipt Date: 20110527
  Transmission Date: 20111010
  Serious: Yes (Other)
  Sender: FDA-Public Use
  Company Number: US-BAYER-201018144NA

PATIENT
  Age: 38 Year
  Sex: Female
  Weight: 72.562 kg

DRUGS (16)
  1. ZELNORM [Concomitant]
  2. PRILOSEC [Concomitant]
     Dosage: UNK
     Dates: start: 20010101
  3. MICROGESTIN 1.5/30 [Concomitant]
     Dosage: UNK
     Dates: start: 20090128, end: 20090626
  4. GUAIFEN-C [Concomitant]
  5. PROTONIX [Concomitant]
     Indication: DYSPEPSIA
     Dosage: 40 MG, QD
     Route: 048
  6. YASMIN [Suspect]
     Dosage: UNK
     Dates: start: 20031030, end: 20031231
  7. ASCORBIC ACID [Concomitant]
  8. NEXIUM [Concomitant]
     Dosage: UNK
     Dates: start: 20020101
  9. PAXIL [Concomitant]
     Indication: ANXIETY
     Dosage: 40 MG, QD
     Route: 048
     Dates: start: 19960101
  10. NORETHINDRONE [Concomitant]
     Dosage: 5 MG, UNK
     Dates: start: 20070309
  11. LOESTRIN 1.5/30 [Concomitant]
     Dosage: UNK
     Route: 048
  12. ASPIRIN [Concomitant]
     Dosage: 81 MG, UNK
     Route: 048
  13. AMBIEN [Concomitant]
     Indication: SLEEP DISORDER THERAPY
     Dosage: 10 MG, HS
     Route: 048
  14. YASMIN [Suspect]
     Indication: PRODUCT USED FOR UNKNOWN INDICATION
     Dosage: UNK UNK, UNK
     Route: 048
     Dates: start: 20000101, end: 20040101
  15. XANAX [Concomitant]
     Indication: ANXIETY
     Dosage: 0.25 MG, BID
     Route: 048
     Dates: start: 19960101
  16. MIRALAX [Concomitant]
     Dosage: 17 G, QD
     Route: 048

REACTIONS (7)
  - BILIARY DYSKINESIA [None]
  - GALLBLADDER INJURY [None]
  - ABDOMINAL PAIN LOWER [None]
  - HAEMORRHOIDS [None]
  - PAIN IN EXTREMITY [None]
  - THROMBOSIS [None]
  - DEEP VEIN THROMBOSIS [None]
